FAERS Safety Report 21220767 (Version 1)
Quarter: 2022Q3

REPORT INFORMATION
  Report Type: Spontaneous
  Country: JP (occurrence: JP)
  Receive Date: 20220817
  Receipt Date: 20220817
  Transmission Date: 20221026
  Serious: Yes (Other)
  Sender: FDA-Public Use
  Company Number: JP-Clinigen Group PLC/ Clinigen Healthcare Ltd-JP-CLGN-22-00327

PATIENT
  Age: 65 Year
  Sex: Male

DRUGS (5)
  1. FOSCARNET SODIUM [Suspect]
     Active Substance: FOSCARNET SODIUM
     Indication: Cytomegalovirus viraemia
  2. FOSCARNET SODIUM [Suspect]
     Active Substance: FOSCARNET SODIUM
     Indication: Pneumonia cytomegaloviral
  3. METHYLPREDNISOLONE [Concomitant]
     Active Substance: METHYLPREDNISOLONE
     Indication: Pneumonia cytomegaloviral
  4. METHOTREXATE [Concomitant]
     Active Substance: METHOTREXATE
     Indication: Pneumonia cytomegaloviral
  5. ACYCLOVIR [Concomitant]
     Active Substance: ACYCLOVIR
     Indication: Antiviral prophylaxis

REACTIONS (3)
  - Hypovolaemic shock [Unknown]
  - Melaena [Unknown]
  - Anaemia [Unknown]
